FAERS Safety Report 9229287 (Version 1)
Quarter: 2013Q2

REPORT INFORMATION
  Report Type: Spontaneous
  Country: US (occurrence: US)
  Receive Date: 20130412
  Receipt Date: 20130412
  Transmission Date: 20140414
  Serious: No
  Sender: FDA-Public Use
  Company Number: US-ASTELLAS-2012US010388

PATIENT
  Age: 0 Year
  Sex: Female

DRUGS (1)
  1. PROGRAF [Suspect]
     Indication: OFF LABEL USE
     Dosage: 5 MG, UNKNOWN/D
     Route: 048
     Dates: start: 20080308

REACTIONS (1)
  - Off label use [Unknown]
